FAERS Safety Report 4352203-2 (Version None)
Quarter: 2004Q2

REPORT INFORMATION
  Report Type: 
  Country: None (occurrence: None)
  Receive Date: 20040504
  Receipt Date: 20031010
  Transmission Date: 20050107
  Serious: Yes (Hospitalization)
  Sender: FDA-Public Use
  Company Number: PHFR2003GB03942

PATIENT
  Age: 31 Year
  Sex: Male
  Weight: 85 kg

DRUGS (3)
  1. OLANZAPINE [Concomitant]
     Dosage: 20MG/DAY
     Route: 065
  2. OLANZAPINE [Concomitant]
     Dosage: 10MG/NOCTE
     Route: 065
  3. CLOZARIL [Suspect]
     Indication: SCHIZOPHRENIA
     Dosage: 300MG/DAY
     Route: 048
     Dates: start: 20030922, end: 20031009

REACTIONS (10)
  - ABDOMINAL PAIN [None]
  - COMPLETED SUICIDE [None]
  - EMOTIONAL DISTRESS [None]
  - HYPERSENSITIVITY [None]
  - MALAISE [None]
  - OEDEMATOUS PANCREATITIS [None]
  - PANCREATITIS ACUTE [None]
  - PSYCHOTIC DISORDER [None]
  - PYREXIA [None]
  - URTICARIA [None]
